FAERS Safety Report 15700436 (Version 1)
Quarter: 2018Q4

REPORT INFORMATION
  Report Type: Spontaneous
  Country: US (occurrence: US)
  Receive Date: 20181207
  Receipt Date: 20181207
  Transmission Date: 20190205
  Serious: No
  Sender: FDA-Public Use
  Company Number: US-009507513-1811USA008175

PATIENT
  Sex: Male

DRUGS (6)
  1. BELSOMRA [Suspect]
     Active Substance: SUVOREXANT
     Indication: INSOMNIA
     Dosage: 20 MG/ ONCE A DAY
     Route: 048
     Dates: start: 2017, end: 201808
  2. VYTORIN [Concomitant]
     Active Substance: EZETIMIBE\SIMVASTATIN
     Dosage: UNK
  3. OMEPRAZOLE. [Concomitant]
     Active Substance: OMEPRAZOLE
     Dosage: UNK
  4. DIAZEPAM. [Concomitant]
     Active Substance: DIAZEPAM
     Dosage: UNK
  5. TRICOR [Concomitant]
     Active Substance: FENOFIBRATE
     Dosage: UNK
  6. GLYXAMBI [Concomitant]
     Active Substance: EMPAGLIFLOZIN\LINAGLIPTIN
     Dosage: UNK

REACTIONS (2)
  - Glycosylated haemoglobin increased [Recovered/Resolved]
  - Blood glucose increased [Recovered/Resolved]
